FAERS Safety Report 19382033 (Version 55)
Quarter: 2025Q2

REPORT INFORMATION
  Report Type: Report from Study
  Country: CO (occurrence: CO)
  Receive Date: 20210607
  Receipt Date: 20250509
  Transmission Date: 20250717
  Serious: Yes (Hospitalization, Other)
  Sender: TAKEDA
  Company Number: CO-TAKEDA-CO202026063

PATIENT
  Age: 20 Year
  Sex: Female
  Weight: 75 kg

DRUGS (11)
  1. ICATIBANT [Suspect]
     Active Substance: ICATIBANT ACETATE
     Indication: Hereditary angioedema
     Dosage: 30 MILLIGRAM, Q6HR
     Dates: start: 20200810
  2. ICATIBANT [Suspect]
     Active Substance: ICATIBANT ACETATE
  3. ICATIBANT [Suspect]
     Active Substance: ICATIBANT ACETATE
  4. TAKHZYRO [Suspect]
     Active Substance: LANADELUMAB-FLYO
     Indication: Hereditary angioedema
     Dosage: 300 MILLIGRAM, Q2WEEKS
     Dates: start: 20200810
  5. TAKHZYRO [Suspect]
     Active Substance: LANADELUMAB-FLYO
     Dosage: 300 MILLIGRAM, Q2WEEKS
     Dates: start: 20230714
  6. TAKHZYRO [Suspect]
     Active Substance: LANADELUMAB-FLYO
     Dosage: 1 DOSAGE FORM, MONTHLY
  7. TAKHZYRO [Suspect]
     Active Substance: LANADELUMAB-FLYO
     Dosage: 150 MILLIGRAM, Q2WEEKS
  8. TAKHZYRO [Suspect]
     Active Substance: LANADELUMAB-FLYO
     Dosage: 300 MILLIGRAM, 2/MONTH
     Dates: end: 20230517
  9. TAKHZYRO [Suspect]
     Active Substance: LANADELUMAB-FLYO
     Dosage: 300 MILLIGRAM, 2/MONTH
     Dates: end: 20230517
  10. TAKHZYRO [Suspect]
     Active Substance: LANADELUMAB-FLYO
     Dosage: 300 MILLIGRAM, 2/MONTH
  11. TAKHZYRO [Suspect]
     Active Substance: LANADELUMAB-FLYO
     Dosage: 300 MILLIGRAM, Q2WEEKS

REACTIONS (54)
  - Cholestasis [Unknown]
  - Proteinuria [Unknown]
  - Tachycardia [Unknown]
  - Weight increased [Unknown]
  - Pre-eclampsia [Recovering/Resolving]
  - Suspected COVID-19 [Recovering/Resolving]
  - Urinary tract infection [Recovering/Resolving]
  - Pruritus [Not Recovered/Not Resolved]
  - Treatment noncompliance [Unknown]
  - Dehydration [Unknown]
  - Abdominal pain lower [Unknown]
  - Fluid retention [Unknown]
  - Cough [Unknown]
  - Oropharyngeal discomfort [Unknown]
  - Chromaturia [Recovering/Resolving]
  - Anaemia [Unknown]
  - Pain [Unknown]
  - Post procedural complication [Not Recovered/Not Resolved]
  - Procedural pain [Not Recovered/Not Resolved]
  - Abdominal pain upper [Unknown]
  - Drug ineffective [Unknown]
  - Pregnancy [Recovered/Resolved]
  - Blood glucose increased [Unknown]
  - Breast feeding [Unknown]
  - Eye pain [Not Recovered/Not Resolved]
  - Chills [Recovering/Resolving]
  - Weight decreased [Recovered/Resolved]
  - Influenza [Not Recovered/Not Resolved]
  - Inflammation [Recovered/Resolved]
  - Oral disorder [Unknown]
  - Oedema peripheral [Recovered/Resolved]
  - Nervousness [Unknown]
  - Anxiety [Unknown]
  - Viral infection [Unknown]
  - Malaise [Unknown]
  - Fatigue [Unknown]
  - Product use issue [Recovered/Resolved]
  - Product temperature excursion issue [Unknown]
  - Product prescribing error [Unknown]
  - Inappropriate schedule of product administration [Unknown]
  - Prescription drug used without a prescription [Recovered/Resolved]
  - Insurance issue [Unknown]
  - Body height decreased [Unknown]
  - Nasal congestion [Recovered/Resolved]
  - Abdominal pain [Not Recovered/Not Resolved]
  - Sinusitis [Recovered/Resolved]
  - Hereditary angioedema [Recovered/Resolved]
  - Rash pruritic [Not Recovered/Not Resolved]
  - Dermatitis allergic [Not Recovered/Not Resolved]
  - Urticaria [Recovering/Resolving]
  - Nausea [Unknown]
  - Pyrexia [Recovered/Resolved]
  - Headache [Not Recovered/Not Resolved]
  - Dizziness [Unknown]

NARRATIVE: CASE EVENT DATE: 20200901
